FAERS Safety Report 8694961 (Version 2)
Quarter: 2012Q4

REPORT INFORMATION
  Report Type: 
  Country: ZA (occurrence: ZA)
  Receive Date: 20120731
  Receipt Date: 20120829
  Transmission Date: 20130627
  Serious: Yes (Death, Hospitalization, Other)
  Sender: FDA-Public Use
  Company Number: ZA-ELI_LILLY_AND_COMPANY-ZA201207006863

PATIENT
  Sex: Male

DRUGS (2)
  1. HUMULIN 70/30 [Suspect]
     Indication: TYPE 2 DIABETES MELLITUS
     Dosage: 32 IU, each morning
     Route: 058
     Dates: start: 2002
  2. HUMULIN 70/30 [Suspect]
     Dosage: 16 IU, each evening
     Route: 058
     Dates: start: 2002

REACTIONS (4)
  - Death [Fatal]
  - Diabetes mellitus inadequate control [Recovered/Resolved]
  - Localised infection [Unknown]
  - Blood glucose increased [Recovered/Resolved]
